FAERS Safety Report 20227451 (Version 2)
Quarter: 2021Q4

REPORT INFORMATION
  Report Type: Spontaneous
  Country: US (occurrence: US)
  Receive Date: 20211224
  Receipt Date: 20211231
  Transmission Date: 20220303
  Serious: Yes (Death, Other)
  Sender: FDA-Public Use
  Company Number: US-UNITED THERAPEUTICS-UNT-2021-026481

PATIENT
  Age: 52 Year
  Sex: Female

DRUGS (3)
  1. TYVASO [Suspect]
     Active Substance: TREPROSTINIL
     Indication: Pulmonary arterial hypertension
     Dosage: UNK
     Dates: start: 202008
  2. TYVASO [Suspect]
     Active Substance: TREPROSTINIL
     Indication: Systemic sclerosis pulmonary
     Dosage: 54 ?G, QID
  3. TYVASO [Suspect]
     Active Substance: TREPROSTINIL
     Indication: Systemic scleroderma

REACTIONS (4)
  - Death [Fatal]
  - Systemic sclerosis pulmonary [Unknown]
  - Systemic scleroderma [Unknown]
  - Off label use [Unknown]

NARRATIVE: CASE EVENT DATE: 20211216
